FAERS Safety Report 20563181 (Version 1)
Quarter: 2022Q1

REPORT INFORMATION
  Report Type: Spontaneous
  Country: CN (occurrence: CN)
  Receive Date: 20220308
  Receipt Date: 20220308
  Transmission Date: 20220423
  Serious: Yes (Other)
  Sender: FDA-Public Use
  Company Number: CN-009507513-2203CHN001283

PATIENT
  Age: 62 Year
  Sex: Male

DRUGS (1)
  1. PEMBROLIZUMAB [Suspect]
     Active Substance: PEMBROLIZUMAB
     Indication: Lung squamous cell carcinoma stage IV
     Dosage: 200 MILLIGRAM
     Dates: start: 20180703, end: 2018

REACTIONS (1)
  - Immune-mediated renal disorder [Recovered/Resolved]

NARRATIVE: CASE EVENT DATE: 20180701
